FAERS Safety Report 8920432 (Version 1)
Quarter: 2012Q4

REPORT INFORMATION
  Report Type: 
  Country: GR (occurrence: GR)
  Receive Date: 20121122
  Receipt Date: 20121122
  Transmission Date: 20130627
  Serious: Yes (Hospitalization)
  Sender: FDA-Public Use
  Company Number: GR-US-EMD SERONO, INC.-7177136

PATIENT
  Age: 0 Year
  Sex: Female
  Weight: 3 kg

DRUGS (1)
  1. REBIF [Suspect]
     Route: 064
     Dates: start: 20110401, end: 201202

REACTIONS (3)
  - Premature baby [Recovered/Resolved]
  - Tachypnoea [Recovered/Resolved]
  - Foetal exposure during pregnancy [Recovered/Resolved]
